FAERS Safety Report 13803272 (Version 2)
Quarter: 2017Q3

REPORT INFORMATION
  Report Type: Report from Study
  Country: US (occurrence: US)
  Receive Date: 20170728
  Receipt Date: 20170809
  Transmission Date: 20171127
  Serious: Yes (Hospitalization)
  Sender: FDA-Public Use
  Company Number: US-BRISTOL-MYERS SQUIBB COMPANY-BMS-2017-064604

PATIENT
  Age: 48 Year
  Sex: Male
  Weight: 75.2 kg

DRUGS (6)
  1. CAFFEINE. [Suspect]
     Active Substance: CAFFEINE
     Indication: NEOPLASM MALIGNANT
     Dosage: 100 MG, UNK
     Route: 048
     Dates: start: 20170620, end: 20170620
  2. DEXTROMETHORPHAN [Suspect]
     Active Substance: DEXTROMETHORPHAN
     Indication: NEOPLASM MALIGNANT
     Dosage: 30 MG, UNK
     Route: 065
     Dates: start: 20170620, end: 20170620
  3. ABEMACICLIB [Suspect]
     Active Substance: ABEMACICLIB
     Indication: NEOPLASM MALIGNANT
     Dosage: 200 MG, BID
     Route: 048
     Dates: start: 20170627
  4. WARFARIN SODIUM. [Suspect]
     Active Substance: WARFARIN SODIUM
     Indication: NEOPLASM MALIGNANT
     Dosage: 10 MG, UNK
     Route: 065
     Dates: start: 20170620, end: 20170620
  5. MIDAZOLAM HYDROCHLORIDE. [Suspect]
     Active Substance: MIDAZOLAM HYDROCHLORIDE
     Indication: NEOPLASM MALIGNANT
     Dosage: 0.2 MG, UNK
     Route: 065
     Dates: start: 20170620, end: 20170620
  6. ABEMACICLIB [Suspect]
     Active Substance: ABEMACICLIB
     Indication: PRODUCT USED FOR UNKNOWN INDICATION
     Dosage: 150 UNK, UNK
     Route: 048
     Dates: start: 20170711

REACTIONS (1)
  - Abdominal pain [Recovered/Resolved]

NARRATIVE: CASE EVENT DATE: 20170630
